FAERS Safety Report 7152472-X (Version None)
Quarter: 2010Q4

REPORT INFORMATION
  Report Type: 
  Country: None (occurrence: None)
  Receive Date: 20101208
  Receipt Date: 20101208
  Transmission Date: 20110411
  Serious: Yes (Other)
  Sender: FDA-Public Use
  Company Number: None

PATIENT
  Sex: Male
  Weight: 80.2867 kg

DRUGS (1)
  1. IRON DEXTRAN [Suspect]
     Dosage: 1000MG IV DRIP

REACTIONS (1)
  - HYPERSENSITIVITY [None]
